FAERS Safety Report 5492731-X (Version None)
Quarter: 2007Q4

REPORT INFORMATION
  Report Type: 
  Country: None (occurrence: None)
  Receive Date: 20071019
  Receipt Date: 20071005
  Transmission Date: 20080405
  Serious: Yes (Hospitalization)
  Sender: FDA-Public Use
  Company Number: SPV1-2007-04507

PATIENT
  Age: 40 Year
  Sex: Male

DRUGS (1)
  1. CARBATROL [Suspect]

REACTIONS (9)
  - CEREBRAL ATROPHY [None]
  - DISEASE RECURRENCE [None]
  - ENCEPHALITIS HERPES [None]
  - GRAND MAL CONVULSION [None]
  - HYPOGAMMAGLOBULINAEMIA [None]
  - LYMPHOPENIA [None]
  - MEMORY IMPAIRMENT [None]
  - SCAR [None]
  - TREATMENT NONCOMPLIANCE [None]
